FAERS Safety Report 9690357 (Version 1)
Quarter: 2013Q4

REPORT INFORMATION
  Report Type: Spontaneous
  Country: IT (occurrence: None)
  Receive Date: 20131113
  Receipt Date: 20131113
  Transmission Date: 20140711
  Serious: Yes (Other)
  Sender: FDA-Public Use
  Company Number: 1998094

PATIENT
  Age: 67 Year
  Sex: Male

DRUGS (7)
  1. IRINOTECAN HYDROCHLORIDE [Suspect]
     Indication: COLON CANCER
     Dosage: 331.2 MG MILLIGRAM(S), CYCLICAL, INTRAVENOUS(NOT OTHERWISE SPECIFIED)
     Route: 042
     Dates: start: 20130226, end: 20130403
  2. ERBITUX [Suspect]
     Indication: COLON CANCER
     Dosage: 460 MG MILLIGRAM(S), CYCLICAL, INTRAVENOUS (NOT OTHERWISE SPECIFIED)
     Route: 042
     Dates: start: 20130226, end: 20130403
  3. FLUOROURACIL TEVA [Suspect]
     Indication: COLON CANCER
     Dosage: 736 MG MILLIGRAM(S), (CYCLICAL), INTRAVENOUS BOLUS
     Route: 040
     Dates: start: 20130226, end: 20130403
  4. FLUOROURACIL TEVA [Suspect]
     Indication: COLON CANCER
     Dosage: 736 MG MILLIGRAM(S), (CYCLICAL), INTRAVENOUS BOLUS
     Route: 040
     Dates: start: 20130226, end: 20130403
  5. ONDANSETRON [Concomitant]
  6. SOLDESAM [Concomitant]
  7. RANIDIL [Concomitant]

REACTIONS (10)
  - Epistaxis [None]
  - Rash [None]
  - Pyrexia [None]
  - Diarrhoea [None]
  - Paraesthesia [None]
  - Rash [None]
  - Muscle spasms [None]
  - Stomatitis [None]
  - Asthenia [None]
  - Paraesthesia [None]
